FAERS Safety Report 5676735-X (Version None)
Quarter: 2008Q1

REPORT INFORMATION
  Report Type: 
  Country: None (occurrence: None)
  Receive Date: 20080318
  Receipt Date: 20080305
  Transmission Date: 20080703
  Serious: Yes (Hospitalization)
  Sender: FDA-Public Use
  Company Number: 2006BI018667

PATIENT
  Age: 58 Year
  Sex: Female

DRUGS (9)
  1. TYSABRI [Suspect]
     Indication: MULTIPLE SCLEROSIS
     Dosage: 300 MG QM IV
     Route: 042
     Dates: start: 20061101, end: 20061101
  2. KLONOPIN [Concomitant]
  3. BACLOFEN [Concomitant]
  4. MIRALAX [Concomitant]
  5. CYCLOBENZAPRINE HCL [Concomitant]
  6. METHYLPREDNISOLONE SODIUM SUCCINATE [Concomitant]
  7. UNIRETIC [Concomitant]
  8. ACETAMINOPHEN AND OXYCODONE HCL [Concomitant]
  9. FENTANYL TRANSDERMAL SYSTEM [Concomitant]

REACTIONS (5)
  - DEEP VEIN THROMBOSIS [None]
  - PNEUMONIA [None]
  - PULMONARY EMBOLISM [None]
  - RHINORRHOEA [None]
  - SNEEZING [None]
